FAERS Safety Report 4375504-0 (Version None)
Quarter: 2004Q2

REPORT INFORMATION
  Report Type: 
  Country: None (occurrence: None)
  Receive Date: 20040607
  Receipt Date: 20040525
  Transmission Date: 20050107
  Serious: Yes (Other)
  Sender: FDA-Public Use
  Company Number: 2004035187

PATIENT
  Sex: Female

DRUGS (2)
  1. DILANTIN KAPSEAL [Suspect]
     Indication: ILL-DEFINED DISORDER
     Dosage: 300 MG (100 MG, 1 IN 1 D), ORAL
     Route: 048
  2. FLUOXETINE HYDROCHLROIDE    (FLUOXETINE HYDROCHLORIDE) [Suspect]
     Indication: ILL-DEFINED DISORDER

REACTIONS (6)
  - CONVULSION [None]
  - MEDICATION ERROR [None]
  - SINUS HEADACHE [None]
  - SOMNOLENCE [None]
  - SUICIDAL IDEATION [None]
  - TREMOR [None]
